FAERS Safety Report 20573049 (Version 1)
Quarter: 2022Q1

REPORT INFORMATION
  Report Type: Spontaneous
  Country: DE (occurrence: None)
  Receive Date: 20220309
  Receipt Date: 20220309
  Transmission Date: 20220423
  Serious: Yes (Other)
  Sender: FDA-Public Use
  Company Number: DE-Eisai Medical Research-EC-2022-110070

PATIENT
  Age: 74 Year
  Sex: Female
  Weight: 58 kg

DRUGS (4)
  1. LENVATINIB [Suspect]
     Active Substance: LENVATINIB
     Indication: Endometrial cancer
     Dosage: DOSE AND FREQUENCY UNKNOWN
     Route: 048
     Dates: start: 202002, end: 202203
  2. VAXZEVRIA [Concomitant]
     Active Substance: AZD-1222
     Indication: Product used for unknown indication
     Dosage: DOSE UNKNOWN, GIVEN ONCE (FIRST DOSE)
     Route: 065
     Dates: start: 20210401, end: 20210401
  3. VAXZEVRIA [Concomitant]
     Active Substance: AZD-1222
     Dosage: DOSE UNKNOWN, GIVEN ONCE (SECOND DOSE)
     Route: 065
     Dates: start: 202106, end: 202106
  4. COMIRNATY [Concomitant]
     Active Substance: TOZINAMERAN
     Indication: Product used for unknown indication
     Dosage: DOSE UNKNOWN, GIVEN ONCE (THIRD DOSE)
     Route: 065
     Dates: start: 202111, end: 202111

REACTIONS (2)
  - Cardiac failure [Unknown]
  - Abdominal pain [Not Recovered/Not Resolved]

NARRATIVE: CASE EVENT DATE: 20220301
